FAERS Safety Report 8304369-7 (Version None)
Quarter: 2012Q2

REPORT INFORMATION
  Report Type: 
  Country: None (occurrence: None)
  Receive Date: 20120423
  Receipt Date: 20120410
  Transmission Date: 20120825
  Serious: Yes (Hospitalization)
  Sender: FDA-Public Use
  Company Number: DK-ELI_LILLY_AND_COMPANY-DK201204003333

PATIENT
  Sex: Female

DRUGS (4)
  1. OXAZEPAM [Concomitant]
  2. ZYPREXA [Suspect]
     Indication: ANXIETY
     Dosage: UNK
     Route: 048
     Dates: start: 20000518
  3. EFFEXOR [Concomitant]
     Indication: ANXIETY
     Dosage: UNK
     Route: 048
     Dates: start: 20000518
  4. CITALOPRAM HYDROBROMIDE [Concomitant]
     Indication: ANXIETY
     Dosage: UNK
     Route: 048
     Dates: start: 20000518

REACTIONS (11)
  - DISTURBANCE IN ATTENTION [None]
  - SPEECH DISORDER [None]
  - ANTISOCIAL BEHAVIOUR [None]
  - WEIGHT INCREASED [None]
  - FATIGUE [None]
  - ANXIETY [None]
  - MEMORY IMPAIRMENT [None]
  - SCHIZOPHRENIA, PARANOID TYPE [None]
  - HEADACHE [None]
  - DEPRESSION [None]
  - ACNE [None]
